FAERS Safety Report 7899010-1 (Version None)
Quarter: 2011Q4

REPORT INFORMATION
  Report Type: 
  Country: None (occurrence: None)
  Receive Date: 20111107
  Receipt Date: 20111027
  Transmission Date: 20120403
  Serious: Yes (Other)
  Sender: FDA-Public Use
  Company Number: US-ASTRAZENECA-2011SE65527

PATIENT
  Age: 63 Year
  Sex: Female

DRUGS (4)
  1. PREDNISONE [Concomitant]
  2. NEXIUM [Suspect]
     Route: 048
  3. PULMICORT [Suspect]
     Route: 055
  4. ALBUTEROL [Concomitant]

REACTIONS (9)
  - DYSPNOEA [None]
  - GASTROOESOPHAGEAL REFLUX DISEASE [None]
  - VOCAL CORD DISORDER [None]
  - DYSPHONIA [None]
  - FRUSTRATION [None]
  - CARPAL TUNNEL SYNDROME [None]
  - WRIST FRACTURE [None]
  - SUICIDAL IDEATION [None]
  - DRUG DOSE OMISSION [None]
